FAERS Safety Report 4588254-2 (Version None)
Quarter: 2005Q1

REPORT INFORMATION
  Report Type: 
  Country: None (occurrence: None)
  Receive Date: 20050222
  Receipt Date: 20050207
  Transmission Date: 20050727
  Serious: Yes (Other)
  Sender: FDA-Public Use
  Company Number: DE-JNJFOC-20050202215

PATIENT

DRUGS (3)
  1. ABCIXIMAB [Suspect]
     Route: 042
  2. ABCIXIMAB [Suspect]
     Route: 042
  3. RETEVASE [Suspect]
     Route: 042

REACTIONS (1)
  - BRAIN OEDEMA [None]
